FAERS Safety Report 16431959 (Version 1)
Quarter: 2019Q2

REPORT INFORMATION
  Report Type: Spontaneous
  Country: CN (occurrence: CN)
  Receive Date: 20190614
  Receipt Date: 20190614
  Transmission Date: 20190711
  Serious: Yes (Hospitalization)
  Sender: FDA-Public Use
  Company Number: CN-NOVOPROD-666321

PATIENT
  Sex: Male

DRUGS (2)
  1. NOVORAPID [Suspect]
     Active Substance: INSULIN ASPART
     Indication: TYPE 2 DIABETES MELLITUS
     Dosage: UNK
     Route: 058
     Dates: start: 20190418
  2. NOVORAPID [Suspect]
     Active Substance: INSULIN ASPART
     Dosage: 6 IU, TID
     Route: 058
     Dates: end: 20190418

REACTIONS (6)
  - Hypersensitivity [Recovering/Resolving]
  - Pruritus generalised [Recovering/Resolving]
  - Flushing [Recovering/Resolving]
  - Dysarthria [Recovering/Resolving]
  - Injection site urticaria [Recovering/Resolving]
  - Hypoaesthesia oral [Recovering/Resolving]

NARRATIVE: CASE EVENT DATE: 20190418
